FAERS Safety Report 8354768-2 (Version None)
Quarter: 2012Q2

REPORT INFORMATION
  Report Type: 
  Country: None (occurrence: None)
  Receive Date: 20120511
  Receipt Date: 20120504
  Transmission Date: 20120825
  Serious: Yes (Other)
  Sender: FDA-Public Use
  Company Number: US-CELGENEUS-163-21880-12042606

PATIENT
  Sex: Male

DRUGS (6)
  1. ALDACTONE [Concomitant]
     Dosage: 50 MILLIGRAM
     Route: 065
     Dates: start: 20120401
  2. REVLIMID [Suspect]
     Indication: MULTIPLE MYELOMA
     Dosage: 25 MILLIGRAM
     Route: 048
     Dates: start: 20120328
  3. DEXAMETHASONE [Concomitant]
     Dosage: 40 MILLIGRAM
     Route: 065
     Dates: start: 20120301
  4. PHENERGAN [Concomitant]
     Dosage: 25 MILLIGRAM
     Route: 065
     Dates: start: 20120401
  5. VELCADE [Concomitant]
     Dosage: 2.4 MILLIGRAM
     Route: 058
     Dates: start: 20120402
  6. LORTAB [Concomitant]
     Dosage: 1 TABLET
     Route: 048
     Dates: start: 20120401

REACTIONS (2)
  - NAUSEA [None]
  - ADVERSE EVENT [None]
